FAERS Safety Report 7041403-9 (Version None)
Quarter: 2010Q4

REPORT INFORMATION
  Report Type: 
  Country: None (occurrence: None)
  Receive Date: 20101013
  Receipt Date: 20101008
  Transmission Date: 20110411
  Serious: Yes (Other)
  Sender: FDA-Public Use
  Company Number: SE-AMGEN-QUU436261

PATIENT
  Age: 73 Year
  Sex: Male

DRUGS (5)
  1. PROLIA [Suspect]
     Indication: OSTEOPOROSIS
     Dates: start: 20100701
  2. CALCIUM [Concomitant]
  3. VITAMIN D [Concomitant]
  4. TAMBOCOR [Concomitant]
  5. SOTALOL [Concomitant]

REACTIONS (7)
  - GENERAL PHYSICAL HEALTH DETERIORATION [None]
  - HYPOCALCAEMIA [None]
  - MUSCLE SPASMS [None]
  - PAIN [None]
  - PARAESTHESIA [None]
  - RESTLESS LEGS SYNDROME [None]
  - SCIATICA [None]
